FAERS Safety Report 25130511 (Version 1)
Quarter: 2025Q1

REPORT INFORMATION
  Report Type: Spontaneous
  Country: US (occurrence: US)
  Receive Date: 20250327
  Receipt Date: 20250327
  Transmission Date: 20250409
  Serious: No
  Sender: DR REDDYS
  Company Number: US-DRL-USA-USA/2025/03/004134

PATIENT
  Age: 42 Year
  Sex: Female
  Weight: 65.77 kg

DRUGS (3)
  1. ACCUTANE [Suspect]
     Active Substance: ISOTRETINOIN
     Indication: Acne cystic
     Dosage: BOX OF 30 (SINGLE PACK OF 10 CAPSULES)
     Route: 065
     Dates: start: 20250101
  2. CELEBREX [Concomitant]
     Active Substance: CELECOXIB
     Indication: Ear canal stenosis
     Dosage: SHE STARTED IT 4-5 MONTHS AGO FOR INFLAMMATION IN HER LEGS AND HAND
     Route: 065
  3. PREGABALIN [Concomitant]
     Active Substance: PREGABALIN
     Indication: Restless legs syndrome
     Dosage: 3 TIMES A DAY, ONE PILL IN THE MORNING , 1 PILL IN AFTERNOON AND 2 AT NIGHT
     Route: 065

REACTIONS (9)
  - Dry eye [Not Recovered/Not Resolved]
  - Renal disorder [Not Recovered/Not Resolved]
  - Visual impairment [Not Recovered/Not Resolved]
  - Headache [Not Recovered/Not Resolved]
  - Rash [Not Recovered/Not Resolved]
  - Halo vision [Not Recovered/Not Resolved]
  - Nasal dryness [Not Recovered/Not Resolved]
  - Back pain [Not Recovered/Not Resolved]
  - Drug ineffective [Unknown]
